FAERS Safety Report 5882597-8 (Version None)
Quarter: 2008Q3

REPORT INFORMATION
  Report Type: 
  Country: None (occurrence: None)
  Receive Date: 20080913
  Receipt Date: 20080813
  Transmission Date: 20090109
  Serious: No
  Sender: FDA-Public Use
  Company Number: US-ABBOTT-08P-163-0470657-00

PATIENT
  Sex: Male
  Weight: 135.75 kg

DRUGS (6)
  1. HUMIRA [Suspect]
     Indication: RHEUMATOID ARTHRITIS
     Route: 058
     Dates: start: 20070301
  2. LEFLUNOMIDE [Concomitant]
     Indication: RHEUMATOID ARTHRITIS
     Route: 048
     Dates: start: 20060101
  3. PREDNISONE TAB [Concomitant]
     Indication: RHEUMATOID ARTHRITIS
     Route: 048
     Dates: start: 20060101
  4. WARFARIN SODIUM [Concomitant]
     Indication: CARDIAC DISORDER
     Route: 048
  5. IBUPROFEN [Concomitant]
     Indication: PAIN
     Route: 048
     Dates: start: 20070101
  6. IBUPROFEN [Concomitant]
     Indication: RHEUMATOID ARTHRITIS

REACTIONS (1)
  - ACCIDENTAL EXPOSURE [None]
